FAERS Safety Report 17547078 (Version 3)
Quarter: 2025Q3

REPORT INFORMATION
  Report Type: Spontaneous
  Country: EU (occurrence: EU)
  Receive Date: 20200316
  Receipt Date: 20250707
  Transmission Date: 20251021
  Serious: Yes (Other)
  Sender: NOVARTIS
  Company Number: EU-NOVARTISPH-NVSC2019PL036504

PATIENT
  Age: 1 Year
  Sex: Male

DRUGS (17)
  1. MYCOPHENOLATE MOFETIL [Suspect]
     Active Substance: MYCOPHENOLATE MOFETIL
     Indication: Immunosuppression
     Route: 065
  2. MYCOPHENOLATE MOFETIL [Suspect]
     Active Substance: MYCOPHENOLATE MOFETIL
     Indication: Prophylaxis against graft versus host disease
  3. CYCLOSPORINE [Suspect]
     Active Substance: CYCLOSPORINE
     Indication: Prophylaxis against graft versus host disease
     Route: 065
  4. CYCLOSPORINE [Suspect]
     Active Substance: CYCLOSPORINE
     Indication: Immunosuppression
  5. ACYCLOVIR [Suspect]
     Active Substance: ACYCLOVIR
     Indication: Antiviral prophylaxis
     Route: 042
  6. METHYLPREDNISOLONE [Suspect]
     Active Substance: METHYLPREDNISOLONE
     Indication: Prophylaxis against graft versus host disease
     Route: 065
  7. TREOSULFAN [Suspect]
     Active Substance: TREOSULFAN
     Indication: Bone marrow conditioning regimen
     Route: 065
  8. TREOSULFAN [Suspect]
     Active Substance: TREOSULFAN
     Indication: Familial haemophagocytic lymphohistiocytosis
  9. CYCLOPHOSPHAMIDE [Suspect]
     Active Substance: CYCLOPHOSPHAMIDE
     Indication: Prophylaxis against graft versus host disease
     Route: 065
  10. CYCLOPHOSPHAMIDE [Suspect]
     Active Substance: CYCLOPHOSPHAMIDE
     Indication: Bone marrow conditioning regimen
     Route: 065
  11. CYCLOPHOSPHAMIDE [Suspect]
     Active Substance: CYCLOPHOSPHAMIDE
     Indication: Immunosuppression
  12. CYCLOPHOSPHAMIDE [Suspect]
     Active Substance: CYCLOPHOSPHAMIDE
     Indication: Familial haemophagocytic lymphohistiocytosis
  13. FLUDARABINE [Suspect]
     Active Substance: FLUDARABINE PHOSPHATE
     Indication: Bone marrow conditioning regimen
     Route: 065
  14. FLUDARABINE [Suspect]
     Active Substance: FLUDARABINE PHOSPHATE
     Indication: Familial haemophagocytic lymphohistiocytosis
  15. SULFAMETHOXAZOLE\TRIMETHOPRIM [Suspect]
     Active Substance: SULFAMETHOXAZOLE\TRIMETHOPRIM
     Indication: Prophylaxis
     Route: 065
  16. SULFAMETHOXAZOLE\TRIMETHOPRIM [Suspect]
     Active Substance: SULFAMETHOXAZOLE\TRIMETHOPRIM
     Indication: Antifungal prophylaxis
  17. GRANULOCYTE COLONY-STIMULATING FACTOR NOS [Concomitant]
     Active Substance: GRANULOCYTE COLONY-STIMULATING FACTOR NOS
     Indication: Product used for unknown indication
     Dosage: 5 UG/KG, QD
     Route: 065

REACTIONS (6)
  - Splenic candidiasis [Recovered/Resolved]
  - Febrile neutropenia [Recovered/Resolved]
  - Cytomegalovirus infection [Recovered/Resolved]
  - Mucosal inflammation [Recovered/Resolved]
  - Therapy non-responder [Unknown]
  - Off label use [Unknown]
